FAERS Safety Report 9265493 (Version 5)
Quarter: 2014Q1

REPORT INFORMATION
  Report Type: Report from Study
  Country: PL (occurrence: PL)
  Receive Date: 20130501
  Receipt Date: 20140203
  Transmission Date: 20141002
  Serious: Yes (Hospitalization, Other)
  Sender: FDA-Public Use
  Company Number: PL-ASTRAZENECA-2013SE28555

PATIENT
  Age: 11617 Day
  Sex: Female

DRUGS (21)
  1. VANDETANIB [Suspect]
     Indication: MEDULLARY THYROID CANCER
     Route: 048
     Dates: start: 20121031, end: 20130122
  2. VANDETANIB [Suspect]
     Indication: MEDULLARY THYROID CANCER
     Route: 048
     Dates: start: 20130123, end: 20130416
  3. VANDETANIB [Suspect]
     Indication: MEDULLARY THYROID CANCER
     Dosage: REDUCED DOSE
     Route: 048
     Dates: start: 20130523, end: 20130709
  4. VANDETANIB [Suspect]
     Indication: MEDULLARY THYROID CANCER
     Route: 048
     Dates: start: 20130709, end: 20130730
  5. CALCIUM CARBONATE [Concomitant]
     Indication: HYPOPARATHYROIDISM
     Route: 048
  6. ALPHACALCIDOL [Concomitant]
     Indication: HYPOPARATHYROIDISM
     Route: 048
  7. HARMONET [Concomitant]
     Indication: ORAL CONTRACEPTION
     Route: 048
  8. ESTAZOLAM [Concomitant]
     Indication: INSOMNIA
     Route: 048
     Dates: start: 20121101
  9. LOPERAMIDE [Concomitant]
     Indication: DIARRHOEA
     Route: 048
     Dates: start: 20121101
  10. EUTHYROX (L-THYROXIN) [Concomitant]
     Indication: POST PROCEDURAL HYPOTHYROIDISM
     Dosage: 125 UG 5 DAYS A WEEK
     Route: 048
     Dates: start: 20121031, end: 20121120
  11. EUTHYROX (L-THYROXIN) [Concomitant]
     Indication: POST PROCEDURAL HYPOTHYROIDISM
     Dosage: 187.5 UG 2 DAYS A WEEK
     Route: 048
     Dates: start: 20121031, end: 20121120
  12. EUTHYROX (L-THYROXIN) [Concomitant]
     Indication: POST PROCEDURAL HYPOTHYROIDISM
     Dosage: 187.5 UG 3 DAYS A WEEK
     Route: 048
     Dates: start: 20121121, end: 20130328
  13. EUTHYROX (L-THYROXIN) [Concomitant]
     Indication: POST PROCEDURAL HYPOTHYROIDISM
     Dosage: 125 UG 4 DAYS A WEEK
     Route: 048
     Dates: start: 20121121, end: 20130328
  14. MAGNE B6 [Concomitant]
     Indication: SUPPLEMENTATION THERAPY
     Route: 048
     Dates: start: 20121120
  15. KALIPOZ [Concomitant]
     Indication: SUPPLEMENTATION THERAPY
     Route: 048
     Dates: start: 20121031, end: 20121226
  16. KALIPOZ [Concomitant]
     Indication: SUPPLEMENTATION THERAPY
     Route: 048
     Dates: start: 20121227
  17. DEBRIDAT [Concomitant]
     Indication: FLATULENCE
     Route: 048
     Dates: start: 20130122
  18. PRESTARIUM [Concomitant]
     Indication: HYPERTENSION
  19. AMLOZEK [Concomitant]
     Indication: HYPERTENSION
  20. CONCOR COR [Concomitant]
     Indication: HYPERTENSION
  21. PROPANOLOL [Concomitant]
     Indication: TACHYCARDIA

REACTIONS (1)
  - Peripheral motor neuropathy [Not Recovered/Not Resolved]
